FAERS Safety Report 4972002-8 (Version None)
Quarter: 2006Q2

REPORT INFORMATION
  Report Type: 
  Country: None (occurrence: None)
  Receive Date: 20060413
  Receipt Date: 20060403
  Transmission Date: 20061013
  Serious: Yes (Other)
  Sender: FDA-Public Use
  Company Number: US-MERCK-0604USA00817

PATIENT
  Sex: Male

DRUGS (4)
  1. VIOXX [Suspect]
     Route: 048
     Dates: start: 20020101
  2. VIOXX [Suspect]
     Route: 048
     Dates: start: 20030301, end: 20030501
  3. VIOXX [Suspect]
     Route: 048
     Dates: start: 20030901, end: 20031101
  4. VIOXX [Suspect]
     Route: 048
     Dates: start: 20040301, end: 20040401

REACTIONS (1)
  - MYOCARDIAL INFARCTION [None]
